FAERS Safety Report 9326042 (Version 3)
Quarter: 2014Q3

REPORT INFORMATION
  Report Type: Report from Study
  Country: DE (occurrence: DE)
  Receive Date: 20130604
  Receipt Date: 20140715
  Transmission Date: 20150326
  Serious: Yes (Hospitalization)
  Sender: FDA-Public Use
  Company Number: DE-UCBSA-058589

PATIENT
  Sex: Male
  Weight: 78 kg

DRUGS (19)
  1. PREDNISOLONE. [Concomitant]
     Active Substance: PREDNISOLONE
     Indication: RHEUMATOID ARTHRITIS
     Dosage: 10 MG, ONCE DAILY (QD)
  2. TOREM [Concomitant]
     Active Substance: TORSEMIDE
     Indication: CARDIAC FAILURE
     Dosage: EVERY MORNING
  3. AMLODIPIN [Concomitant]
     Active Substance: AMLODIPINE BESYLATE
     Indication: HYPERTENSION
     Dosage: EVERY MORNING
  4. KEPPRA [Concomitant]
     Active Substance: LEVETIRACETAM
     Indication: EPILEPSY
     Dosage: EVERY MORNING
  5. CERTOLIZUMAB PEGOL RA [Suspect]
     Active Substance: CERTOLIZUMAB PEGOL
     Indication: RHEUMATOID ARTHRITIS
     Route: 058
     Dates: start: 20120319, end: 201203
  6. CERTOLIZUMAB PEGOL RA [Suspect]
     Active Substance: CERTOLIZUMAB PEGOL
     Route: 058
     Dates: start: 20110211, end: 20120203
  7. VOCADO [Concomitant]
     Active Substance: AMLODIPINE BESYLATE\OLMESARTAN MEDOXOMIL
     Indication: HYPERTENSION
     Dosage: 40/10 MG: EVERY MORNING
  8. EZETOL [Concomitant]
     Indication: HYPERCHOLESTEROLAEMIA
     Dosage: EVERY MORNING
  9. METAMIZOLE [Concomitant]
     Active Substance: METAMIZOLE
     Indication: PAIN
     Dosage: 500 MG, AS NEEDED (PRN)
  10. METOPROLOL [Concomitant]
     Active Substance: METOPROLOL
     Indication: CORONARY ARTERY DISEASE
     Dosage: 50 MG, 2X/DAY (BID)
  11. TOREM [Concomitant]
     Active Substance: TORSEMIDE
     Indication: HYPERTENSION
  12. OLMESARTAN [Concomitant]
     Active Substance: OLMESARTAN
     Indication: HYPERTENSION
     Dosage: 20 MG, 2X/DAY (BID)
  13. DECORTIN [Concomitant]
     Active Substance: PREDNISONE
     Indication: ARTHRITIS
     Dosage: EVERY MORNING
  14. ASS 100 [Concomitant]
     Active Substance: ASPIRIN
     Indication: THROMBOSIS PROPHYLAXIS
     Dosage: EVERY MORNING
     Dates: start: 2009
  15. PANTOZOL [Concomitant]
     Active Substance: PANTOPRAZOLE SODIUM
     Indication: PROPHYLAXIS AGAINST GASTROINTESTINAL ULCER
     Dosage: EVERY MORNING
  16. VOCADO [Concomitant]
     Active Substance: AMLODIPINE BESYLATE\OLMESARTAN MEDOXOMIL
     Indication: HYPERTENSION
     Dosage: 40/10 MG: EVERY MORNING
  17. SIMVASTATIN. [Concomitant]
     Active Substance: SIMVASTATIN
     Indication: HYPERLIPIDAEMIA
     Dosage: EVERY NIGHT
  18. COMBINATION INSULIN [Concomitant]
     Indication: DIABETES MELLITUS
     Dosage: 30/70 IU BID
     Route: 058
  19. ALLOPURINOL. [Concomitant]
     Active Substance: ALLOPURINOL
     Indication: HYPERURICAEMIA
     Dosage: 100 MG, 2X/DAY (BID)

REACTIONS (2)
  - Influenza [Recovered/Resolved]
  - Dislocation of vertebra [Recovered/Resolved]

NARRATIVE: CASE EVENT DATE: 201203
